FAERS Safety Report 6598854-6 (Version None)
Quarter: 2010Q1

REPORT INFORMATION
  Report Type: 
  Country: None (occurrence: None)
  Receive Date: 20100217
  Receipt Date: 20100202
  Transmission Date: 20100710
  Serious: Yes (Other)
  Sender: FDA-Public Use
  Company Number: AMAG201000069

PATIENT
  Age: 73 Year
  Sex: Female
  Weight: 103 kg

DRUGS (4)
  1. FERAHEME [Suspect]
     Indication: IRON DEFICIENCY ANAEMIA
     Dosage: 13 ML, SINGLE, INTRAVENOUS
     Route: 042
     Dates: start: 20091124, end: 20091124
  2. METOPROLOL TARTRATE [Concomitant]
  3. LASIX [Concomitant]
  4. LISINOPRIL (LISINOPRIL DIHYDRATE) [Concomitant]

REACTIONS (17)
  - BLOOD PRESSURE INCREASED [None]
  - CHILLS [None]
  - CYANOSIS [None]
  - DIZZINESS [None]
  - EYE ROLLING [None]
  - GAZE PALSY [None]
  - HEART RATE INCREASED [None]
  - HYPOTENSION [None]
  - MUSCULOSKELETAL STIFFNESS [None]
  - NAUSEA [None]
  - OXYGEN SATURATION DECREASED [None]
  - PALLOR [None]
  - POSTURING [None]
  - PYREXIA [None]
  - RETCHING [None]
  - SYNCOPE [None]
  - VOMITING [None]
